FAERS Safety Report 5504638-X (Version None)
Quarter: 2007Q4

REPORT INFORMATION
  Report Type: 
  Country: None (occurrence: None)
  Receive Date: 20071101
  Receipt Date: 20071005
  Transmission Date: 20080405
  Serious: No
  Sender: FDA-Public Use
  Company Number: US-BOEHRINGER INGELHEIM PHARMACEUTICALS, INC.-2007-BP-22553BP

PATIENT

DRUGS (3)
  1. FLOMAX [Suspect]
  2. MICARDIS [Concomitant]
  3. PROSCAR [Concomitant]

REACTIONS (1)
  - FATIGUE [None]
